FAERS Safety Report 6463207-8 (Version None)
Quarter: 2009Q4

REPORT INFORMATION
  Report Type: 
  Country: None (occurrence: None)
  Receive Date: 20091123
  Receipt Date: 20091113
  Transmission Date: 20100525
  Serious: Yes (Hospitalization)
  Sender: FDA-Public Use
  Company Number: 2009SP036560

PATIENT
  Sex: Female

DRUGS (4)
  1. TEMODAL [Suspect]
     Indication: DRUG USE FOR UNKNOWN INDICATION
  2. BACTRIM [Concomitant]
  3. KEPPRA [Concomitant]
  4. RANITIDINE [Concomitant]

REACTIONS (1)
  - SEPSIS [None]
